FAERS Safety Report 9729171 (Version 2)
Quarter: 2013Q4

REPORT INFORMATION
  Report Type: Spontaneous
  Country: JP (occurrence: JP)
  Receive Date: 20131204
  Receipt Date: 20131204
  Transmission Date: 20140711
  Serious: Yes (Hospitalization)
  Sender: FDA-Public Use
  Company Number: JP-BAYER-2013-142625

PATIENT
  Age: 5 Year
  Sex: Male
  Weight: 16 kg

DRUGS (4)
  1. BAYASPIRIN [Suspect]
     Dosage: 50 MG/KG, UNK
     Route: 048
  2. OSELTAMIVIR PHOSPHATE [Suspect]
     Indication: INFLUENZA
     Dosage: UNK
     Route: 048
  3. METHYLEPHEDRINE [Suspect]
     Indication: INFLUENZA
     Dosage: UNK
     Route: 048
  4. GAMMA-GLOBULIN [Concomitant]
     Dosage: 200 MG/KG, DAILY
     Route: 042

REACTIONS (1)
  - Stevens-Johnson syndrome [Recovering/Resolving]
